FAERS Safety Report 10741555 (Version 1)
Quarter: 2015Q1

REPORT INFORMATION
  Report Type: Spontaneous
  Country: US (occurrence: None)
  Receive Date: 20150123
  Receipt Date: 20150123
  Transmission Date: 20150721
  Serious: Yes (Life-Threatening, Hospitalization)
  Sender: FDA-Public Use
  Company Number: None

PATIENT
  Age: 65 Year
  Sex: Female
  Weight: 54 kg

DRUGS (6)
  1. OXALIPLATIN. [Suspect]
     Active Substance: OXALIPLATIN
     Indication: COLON CANCER METASTATIC
     Dosage: 128 MG (85 MG/M2) ONCE IV
     Route: 042
     Dates: start: 20141028
  2. LORAZEPAM. [Concomitant]
     Active Substance: LORAZEPAM
  3. DEXAMETHASONE. [Concomitant]
     Active Substance: DEXAMETHASONE
  4. PALONOSETRON [Concomitant]
     Active Substance: PALONOSETRON
  5. LEUCOVORIN [Concomitant]
     Active Substance: LEUCOVORIN
  6. INFLUENZA QUADRIVALENT VACCINE [Concomitant]

REACTIONS (9)
  - Syncope [None]
  - Swollen tongue [None]
  - Nausea [None]
  - Sinus bradycardia [None]
  - Dizziness [None]
  - Hypoaesthesia oral [None]
  - Anaphylactoid reaction [None]
  - Pruritus [None]
  - Bradycardia [None]

NARRATIVE: CASE EVENT DATE: 20141028
